FAERS Safety Report 22265509 (Version 1)
Quarter: 2023Q2

REPORT INFORMATION
  Report Type: Spontaneous
  Country: US (occurrence: US)
  Receive Date: 20230428
  Receipt Date: 20230428
  Transmission Date: 20230721
  Serious: Yes (Other)
  Sender: FDA-Public Use
  Company Number: US-ALXN-A202305630

PATIENT
  Sex: Male

DRUGS (1)
  1. SOLIRIS [Suspect]
     Active Substance: ECULIZUMAB
     Indication: Product used for unknown indication
     Dosage: UNK
     Route: 065

REACTIONS (4)
  - Congenital aplastic anaemia [Unknown]
  - Epstein-Barr virus infection [Unknown]
  - Laboratory test abnormal [Unknown]
  - Bone marrow transplant [Unknown]

NARRATIVE: CASE EVENT DATE: 20230401
